FAERS Safety Report 6398761-8 (Version None)
Quarter: 2009Q4

REPORT INFORMATION
  Report Type: 
  Country: None (occurrence: None)
  Receive Date: 20091013
  Receipt Date: 20091008
  Transmission Date: 20100525
  Serious: Yes (Life-Threatening, Other)
  Sender: FDA-Public Use
  Company Number: FR-B.I. PHARMACEUTICALS,INC./RIDGEFIELD-2009-FF-00685FF

PATIENT
  Age: 74 Year
  Sex: Female

DRUGS (1)
  1. MOBIC [Suspect]
     Indication: NECK PAIN
     Dosage: 1 ANZ
     Route: 048

REACTIONS (6)
  - COLITIS ULCERATIVE [None]
  - CROHN'S DISEASE [None]
  - CUSHING'S SYNDROME [None]
  - DEHYDRATION [None]
  - FEMALE GENITAL TRACT FISTULA [None]
  - SEPTIC SHOCK [None]
